FAERS Safety Report 8174483-8 (Version None)
Quarter: 2012Q1

REPORT INFORMATION
  Report Type: 
  Country: None (occurrence: None)
  Receive Date: 20120229
  Receipt Date: 20120228
  Transmission Date: 20120608
  Serious: Yes (Other)
  Sender: FDA-Public Use
  Company Number: FR-ROCHE-791639

PATIENT
  Sex: Male

DRUGS (1)
  1. ISOTRETINOIN [Suspect]
     Indication: ACNE
     Dosage: DOSE: 3 CYCLES ALTOGETHER
     Route: 048
     Dates: start: 19980101, end: 20050301

REACTIONS (2)
  - DEPRESSION [None]
  - ANXIETY [None]
